FAERS Safety Report 4606875-5 (Version None)
Quarter: 2005Q1

REPORT INFORMATION
  Report Type: 
  Country: None (occurrence: None)
  Receive Date: 20050310
  Receipt Date: 20050302
  Transmission Date: 20050727
  Serious: Yes (Hospitalization)
  Sender: FDA-Public Use
  Company Number: TPA2005A00259

PATIENT
  Sex: Female

DRUGS (3)
  1. ACTOS [Suspect]
     Indication: INSULIN RESISTANCE
     Dosage: 30 MG, 1 IN 1 D, PER ORAL
     Route: 048
     Dates: end: 20040901
  2. GLUCOPHAGE (METFORMIN) (1000 MILLIGRAM, PILL) [Concomitant]
  3. HUMALOG MIX 75/25 (INSULIN LISPRO) (100 MG IU(INTERNATIONAL UNIT)) [Concomitant]

REACTIONS (1)
  - ANEURYSM [None]
